FAERS Safety Report 23417975 (Version 1)
Quarter: 2024Q1

REPORT INFORMATION
  Report Type: Spontaneous
  Country: CN (occurrence: CN)
  Receive Date: 20240118
  Receipt Date: 20240118
  Transmission Date: 20240410
  Serious: Yes (Life-Threatening, Other)
  Sender: FDA-Public Use
  Company Number: CN-009507513-2401CHN007353

PATIENT
  Age: 81 Year
  Sex: Male
  Weight: 62.7 kg

DRUGS (3)
  1. CILASTATIN SODIUM\IMIPENEM [Suspect]
     Active Substance: CILASTATIN SODIUM\IMIPENEM
     Indication: Pneumonia
     Dosage: 1 G, Q6H, IV RIP
     Route: 041
     Dates: start: 20231226, end: 20231227
  2. VANCOMYCIN [Concomitant]
     Active Substance: VANCOMYCIN
     Indication: Anti-infective therapy
     Dosage: UNK
     Dates: start: 20231226
  3. VORICONAZOLE [Concomitant]
     Active Substance: VORICONAZOLE
     Indication: Anti-infective therapy
     Dosage: UNK
     Dates: start: 20231226

REACTIONS (5)
  - Epilepsy [Recovering/Resolving]
  - Contusion [Unknown]
  - Orbital oedema [Unknown]
  - Asthenia [Unknown]
  - Pyrexia [Unknown]

NARRATIVE: CASE EVENT DATE: 20231201
